FAERS Safety Report 17228010 (Version 1)
Quarter: 2019Q4

REPORT INFORMATION
  Report Type: Spontaneous
  Country: US (occurrence: US)
  Receive Date: 20191209
  Receipt Date: 20191209
  Transmission Date: 20200122
  Serious: Yes (Other)
  Sender: FDA-Public Use
  Company Number: None

PATIENT
  Age: 61 Year
  Sex: Male
  Weight: 23.4 kg

DRUGS (2)
  1. IOVERSOL [Suspect]
     Active Substance: IOVERSOL
     Indication: SURGERY
     Route: 042
     Dates: start: 20191022, end: 20191022
  2. IOVERSOL [Suspect]
     Active Substance: IOVERSOL
     Indication: CARDIOVASCULAR DISORDER
     Route: 042
     Dates: start: 20191022, end: 20191022

REACTIONS (5)
  - Dyspnoea [None]
  - Urticaria [None]
  - Cough [None]
  - Anaphylactic reaction [None]
  - Wheezing [None]

NARRATIVE: CASE EVENT DATE: 20191022
